FAERS Safety Report 6452832-6 (Version None)
Quarter: 2009Q4

REPORT INFORMATION
  Report Type: 
  Country: None (occurrence: None)
  Receive Date: 20091123
  Receipt Date: 20091123
  Transmission Date: 20100525
  Serious: Yes (Other)
  Sender: FDA-Public Use
  Company Number: None

PATIENT
  Sex: Male
  Weight: 108.8633 kg

DRUGS (1)
  1. DIOVAN HCT [Suspect]
     Indication: HYPERTENSION
     Dosage: 320 MG 1 MOUTH
     Route: 048

REACTIONS (6)
  - ARTHRALGIA [None]
  - FATIGUE [None]
  - INCREASED APPETITE [None]
  - MUSCLE SPASMS [None]
  - MUSCULAR WEAKNESS [None]
  - WEIGHT INCREASED [None]
